FAERS Safety Report 9866320 (Version 2)
Quarter: 2014Q1

REPORT INFORMATION
  Report Type: Report from Study
  Country: DE (occurrence: DE)
  Receive Date: 20140204
  Receipt Date: 20140225
  Transmission Date: 20141002
  Serious: Yes (Hospitalization)
  Sender: FDA-Public Use
  Company Number: DE-AMGEN-DEUCT2014007004

PATIENT
  Age: 58 Year
  Sex: Male
  Weight: 61 kg

DRUGS (7)
  1. PANITUMUMAB [Suspect]
     Indication: OESOPHAGEAL SQUAMOUS CELL CARCINOMA
     Dosage: 567 MG, Q3WK
     Route: 042
     Dates: start: 20130618
  2. CISPLATIN [Concomitant]
     Indication: OESOPHAGEAL SQUAMOUS CELL CARCINOMA
     Dosage: 90 MG, Q3WK
     Route: 042
     Dates: start: 20130618, end: 20131104
  3. 5-FU                               /00098801/ [Concomitant]
     Indication: OESOPHAGEAL SQUAMOUS CELL CARCINOMA
     Dosage: 7200 MG, Q3WK
     Route: 042
     Dates: start: 20130618, end: 20131104
  4. MINOCYCLINE [Concomitant]
     Dosage: 50 MG, UNK
  5. PANTOPRAZOL [Concomitant]
  6. TORSEMIDE [Concomitant]
     Dosage: 10 MG, UNK
  7. LYRICA [Concomitant]

REACTIONS (1)
  - Hypocalcaemia [Recovered/Resolved]
